FAERS Safety Report 12007109 (Version 1)
Quarter: 2016Q1

REPORT INFORMATION
  Report Type: Other
  Country: US (occurrence: US)
  Receive Date: 20160204
  Receipt Date: 20160204
  Transmission Date: 20160526
  Serious: Yes (Other)
  Sender: FDA-Public Use
  Company Number: US-SHIRE-US201600923

PATIENT
  Sex: Female

DRUGS (5)
  1. FIRAZYR [Concomitant]
     Active Substance: ICATIBANT ACETATE
     Indication: HEREDITARY ANGIOEDEMA
  2. FIRAZYR [Concomitant]
     Active Substance: ICATIBANT ACETATE
     Indication: PHARYNGEAL OEDEMA
  3. CINRYZE [Suspect]
     Active Substance: HUMAN C1-ESTERASE INHIBITOR
     Indication: HEREDITARY ANGIOEDEMA
     Dosage: UNK, UNKNOWN
     Route: 042
  4. CINRYZE [Suspect]
     Active Substance: HUMAN C1-ESTERASE INHIBITOR
     Indication: PROPHYLAXIS
  5. FIRAZYR [Concomitant]
     Active Substance: ICATIBANT ACETATE
     Indication: HEREDITARY ANGIOEDEMA
     Dosage: 30 MG, AS REQ^D
     Route: 058
     Dates: start: 201112

REACTIONS (7)
  - Hereditary angioedema [Recovered/Resolved]
  - Anxiety [Not Recovered/Not Resolved]
  - Prescribed overdose [Recovered/Resolved]
  - Stress [Not Recovered/Not Resolved]
  - Product use issue [Recovered/Resolved]
  - Pharyngeal oedema [Recovered/Resolved]
  - Poor venous access [Recovered/Resolved]
